FAERS Safety Report 5413933-4 (Version None)
Quarter: 2007Q3

REPORT INFORMATION
  Report Type: 
  Country: None (occurrence: None)
  Receive Date: 20070814
  Receipt Date: 20070806
  Transmission Date: 20080115
  Serious: Yes (Hospitalization)
  Sender: FDA-Public Use
  Company Number: DE-BOEHRINGER INGELHEIM PHARMACEUTICALS, INC.-2007-DE-04739DE

PATIENT
  Sex: Female
  Weight: 64 kg

DRUGS (21)
  1. AGGRENOX [Suspect]
     Indication: THROMBOSIS PROPHYLAXIS
     Route: 048
  2. BRONCHORETARD [Concomitant]
  3. OLMETEC [Concomitant]
  4. LACTULOSE NEDA [Concomitant]
     Dosage: 3 X 10-20 ML
  5. PHOSPHONORM [Concomitant]
     Route: 048
  6. MAGNESIUM DIASPORAL 300 [Concomitant]
  7. AMPHO MORONAL [Concomitant]
     Indication: ORAL CANDIDIASIS
     Route: 048
  8. LANZOPRAZOL [Concomitant]
  9. TORSEMIDE [Concomitant]
  10. DILTIAZEM [Concomitant]
  11. EBRANTIL [Concomitant]
     Indication: HYPERTENSION
  12. PREDNISON [Concomitant]
  13. MYDOCALM [Concomitant]
     Dosage: 3X1 TO 3X3 DEPEND ON EFFECT
  14. ZOPICLODURA [Concomitant]
  15. DOXEPIN HCL [Concomitant]
  16. BROMAZYNIL [Concomitant]
  17. SPIRIVA [Concomitant]
     Route: 055
  18. ACC LONG [Concomitant]
  19. BUDES EASYHALER [Concomitant]
  20. VOLMAC [Concomitant]
  21. SINGULAIR [Concomitant]

REACTIONS (1)
  - ASTHMA [None]
